FAERS Safety Report 23426245 (Version 1)
Quarter: 2024Q1

REPORT INFORMATION
  Report Type: Other
  Country: AT (occurrence: None)
  Receive Date: 20240122
  Receipt Date: 20240122
  Transmission Date: 20240410
  Serious: Yes (Death, Other)
  Sender: FDA-Public Use
  Company Number: AT-ROCHE-3493846

PATIENT

DRUGS (8)
  1. BEVACIZUMAB [Suspect]
     Active Substance: BEVACIZUMAB
     Indication: Medulloblastoma recurrent
     Route: 042
  2. THALIDOMIDE [Suspect]
     Active Substance: THALIDOMIDE
     Indication: Medulloblastoma recurrent
     Route: 048
  3. CELECOXIB [Suspect]
     Active Substance: CELECOXIB
     Indication: Medulloblastoma recurrent
     Route: 065
  4. FENOFIBRATE [Suspect]
     Active Substance: FENOFIBRATE
     Indication: Medulloblastoma recurrent
     Route: 065
  5. ETOPOSIDE [Suspect]
     Active Substance: ETOPOSIDE
     Indication: Medulloblastoma recurrent
     Dosage: 35-50 MG/M2 DAILY FOR 21 DAYS DEPENDING ON ANTICIPATED BONE MARROW TOLERANCE
     Route: 065
  6. ETOPOSIDE [Suspect]
     Active Substance: ETOPOSIDE
     Dosage: ON FIVE CONSECUTIVE DAYS
     Route: 065
  7. CYCLOPHOSPHAMIDE [Suspect]
     Active Substance: CYCLOPHOSPHAMIDE
     Indication: Medulloblastoma recurrent
     Dosage: FOR 21 DAYS
     Route: 065
  8. CYTARABINE [Suspect]
     Active Substance: CYTARABINE
     Indication: Medulloblastoma recurrent
     Dosage: 30 MG TWICE A WEEK; {1 YEAR 16 MG, }1 AND {2 YEARS 20 MG, }2 AND {3 YEARS 26 MG) ON DAYS 1, 4, 8 AND
     Route: 065

REACTIONS (49)
  - Acute myeloid leukaemia [Fatal]
  - Anaemia [Unknown]
  - Leukopenia [Unknown]
  - Lymphopenia [Unknown]
  - Seizure [Unknown]
  - Mucosal inflammation [Unknown]
  - Hypertension [Unknown]
  - Proteinuria [Unknown]
  - Wound dehiscence [Unknown]
  - Epistaxis [Unknown]
  - Hypomagnesaemia [Unknown]
  - Hyponatraemia [Unknown]
  - Hepatic enzyme increased [Unknown]
  - Arachnoiditis [Unknown]
  - Febrile neutropenia [Unknown]
  - Upper respiratory tract infection [Unknown]
  - Encephalitis [Unknown]
  - Meningitis [Unknown]
  - Sepsis [Unknown]
  - Infection [Unknown]
  - Neutropenia [Unknown]
  - Hypoacusis [Unknown]
  - Platelet count decreased [Unknown]
  - Cerebral haemorrhage [Unknown]
  - Confusional state [Unknown]
  - Diplopia [Unknown]
  - Dizziness [Unknown]
  - Dysarthria [Unknown]
  - Dysaesthesia [Unknown]
  - Fatigue [Unknown]
  - Headache [Unknown]
  - Nausea [Unknown]
  - Nystagmus [Unknown]
  - Papilloedema [Unknown]
  - Paraesthesia [Unknown]
  - Polyneuropathy [Unknown]
  - Tremor [Unknown]
  - Asthenia [Unknown]
  - Constipation [Unknown]
  - Diarrhoea [Unknown]
  - Vomiting [Unknown]
  - Conjunctivitis [Unknown]
  - Pyrexia [Unknown]
  - Gingivitis [Unknown]
  - Renal function test abnormal [Unknown]
  - Haematuria [Unknown]
  - Alopecia [Unknown]
  - Decreased appetite [Unknown]
  - Dry eye [Unknown]
